FAERS Safety Report 21082444 (Version 3)
Quarter: 2022Q3

REPORT INFORMATION
  Report Type: Spontaneous
  Country: US (occurrence: US)
  Receive Date: 20220714
  Receipt Date: 20220719
  Transmission Date: 20221027
  Serious: No
  Sender: FDA-Public Use
  Company Number: US-PFIZER INC-202200949850

PATIENT
  Age: 64 Year
  Sex: Male
  Weight: 86.18 kg

DRUGS (6)
  1. PAXLOVID [Suspect]
     Active Substance: NIRMATRELVIR\RITONAVIR
     Indication: COVID-19 treatment
     Dosage: 6 PILLS A DAY
     Dates: start: 20220711, end: 20220713
  2. XANAX [Concomitant]
     Active Substance: ALPRAZOLAM
     Indication: Anxiety disorder
     Dosage: UNK
  3. CLONAZEPAM [Concomitant]
     Active Substance: CLONAZEPAM
     Indication: Anxiety disorder
     Dosage: UNK
  4. METOPROLOL [Concomitant]
     Active Substance: METOPROLOL
     Indication: Cardiac disorder
     Dosage: 25 MG
  5. PRALUENT [Concomitant]
     Active Substance: ALIROCUMAB
     Indication: Cardiac disorder
     Dosage: 150 MG
  6. ATORVASTATIN CALCIUM [Concomitant]
     Active Substance: ATORVASTATIN CALCIUM
     Indication: Cardiac disorder
     Dosage: 40 MG

REACTIONS (8)
  - Feeling abnormal [Unknown]
  - Speech disorder [Unknown]
  - Aphonia [Unknown]
  - Insomnia [Unknown]
  - Malaise [Unknown]
  - Dysgeusia [Unknown]
  - Product taste abnormal [Unknown]
  - Incorrect dose administered [Unknown]

NARRATIVE: CASE EVENT DATE: 20220711
